FAERS Safety Report 4850345-6 (Version None)
Quarter: 2005Q4

REPORT INFORMATION
  Report Type: 
  Country: None (occurrence: None)
  Receive Date: 20051207
  Receipt Date: 20051207
  Transmission Date: 20060501
  Serious: Yes (Hospitalization)
  Sender: FDA-Public Use
  Company Number: None

PATIENT
  Age: 54 Year
  Sex: Male
  Weight: 122 kg

DRUGS (2)
  1. MORPHINE [Suspect]
     Dosage: 20MG PO PRN
     Route: 048
  2. GABAPENTIN [Concomitant]

REACTIONS (6)
  - BLOOD PRESSURE DECREASED [None]
  - DIZZINESS [None]
  - FALL [None]
  - HUMERUS FRACTURE [None]
  - HYPERHIDROSIS [None]
  - TACHYCARDIA [None]
